FAERS Safety Report 10695004 (Version 3)
Quarter: 2015Q1

REPORT INFORMATION
  Report Type: Spontaneous
  Country: PE (occurrence: PE)
  Receive Date: 20150107
  Receipt Date: 20150120
  Transmission Date: 20150721
  Serious: Yes (Hospitalization)
  Sender: FDA-Public Use
  Company Number: PE-TEVA-532764ISR

PATIENT
  Age: 92 Year
  Sex: Male

DRUGS (4)
  1. AZILECT [Suspect]
     Active Substance: RASAGILINE MESYLATE
     Indication: PARKINSON^S DISEASE
     Dosage: 1 MILLIGRAM DAILY;
     Route: 048
     Dates: start: 20141203, end: 20150102
  2. LOSARTAN [Concomitant]
     Active Substance: LOSARTAN
     Indication: HYPERTENSION
     Dosage: 50 MILLIGRAM DAILY; THE PATIENT STARTED THIS MEDICATION 10 YEARS AGO
     Route: 048
     Dates: end: 20150104
  3. SULCONAR [Concomitant]
     Indication: PARKINSON^S DISEASE
     Dosage: THE TABLET CONTAINS CARBIDOPA 25MG + LEVODOPA 250MG, TAKES 2 TABLETS DAILY.
     Route: 048
     Dates: start: 201409, end: 20150104
  4. WARFARIN [Concomitant]
     Active Substance: WARFARIN
     Indication: THROMBOSIS
     Dosage: 2.5 MILLIGRAM DAILY; TAKES HALF A TABLET DAILY
     Route: 048
     Dates: end: 20150104

REACTIONS (2)
  - Productive cough [Recovered/Resolved]
  - Bronchial disorder [Recovered/Resolved]

NARRATIVE: CASE EVENT DATE: 20150103
